FAERS Safety Report 17125714 (Version 3)
Quarter: 2020Q3

REPORT INFORMATION
  Report Type: Report from Study
  Country: IT (occurrence: IT)
  Receive Date: 20191208
  Receipt Date: 20200310
  Transmission Date: 20201104
  Serious: Yes (Death, Life-Threatening, Hospitalization, Congenital Anomaly)
  Sender: FDA-Public Use
  Company Number: NVSC2019IT053313

PATIENT
  Age: 54 Year
  Sex: Female

DRUGS (11)
  1. PANTOPRAZOLE [Concomitant]
     Active Substance: PANTOPRAZOLE
     Indication: PROPHYLAXIS
     Dosage: UNK
     Route: 065
     Dates: start: 20191017
  2. KETOROLAC [Concomitant]
     Active Substance: KETOROLAC TROMETHAMINE
     Indication: CANCER PAIN
     Dosage: UNK
     Route: 065
     Dates: start: 20191107
  3. CANAKINUMAB. [Suspect]
     Active Substance: CANAKINUMAB
     Indication: TRIPLE NEGATIVE BREAST CANCER
     Dosage: UNK
     Route: 058
     Dates: start: 20191105
  4. LAG525 [Suspect]
     Active Substance: IERAMILIMAB
     Indication: TRIPLE NEGATIVE BREAST CANCER
     Dosage: UNK
     Route: 042
     Dates: start: 20191105
  5. MORPHINE [Concomitant]
     Active Substance: MORPHINE
     Indication: CANCER PAIN
     Dosage: UNK
     Route: 065
     Dates: start: 20191107
  6. PANTOPRAZOL [Concomitant]
     Active Substance: PANTOPRAZOLE SODIUM
     Indication: GASTRIC PROLAPSE
     Dosage: UNK
     Route: 065
     Dates: start: 20191017
  7. MIDAZOLAM HYDROCHLORIDE. [Concomitant]
     Active Substance: MIDAZOLAM HYDROCHLORIDE
     Indication: CANCER PAIN
     Dosage: UNK
     Route: 065
     Dates: start: 20191107
  8. CHLORPROMAZINE. [Concomitant]
     Active Substance: CHLORPROMAZINE
     Indication: CANCER PAIN
     Dosage: UNK
     Route: 065
     Dates: start: 20191107
  9. PDR001 [Suspect]
     Active Substance: SPARTALIZUMAB
     Indication: TRIPLE NEGATIVE BREAST CANCER
     Dosage: UNK
     Route: 042
     Dates: start: 20191105
  10. HALOPERIDOL. [Concomitant]
     Active Substance: HALOPERIDOL
     Indication: CANCER PAIN
     Dosage: UNK
     Route: 065
     Dates: start: 20191107
  11. FENTANYL. [Concomitant]
     Active Substance: FENTANYL
     Indication: CANCER PAIN
     Route: 065
     Dates: start: 20191031, end: 20191107

REACTIONS (1)
  - General physical condition abnormal [Fatal]

NARRATIVE: CASE EVENT DATE: 20191126
